FAERS Safety Report 5290719-5 (Version None)
Quarter: 2007Q2

REPORT INFORMATION
  Report Type: 
  Country: None (occurrence: None)
  Receive Date: 20070405
  Receipt Date: 20070405
  Transmission Date: 20071010
  Serious: No
  Sender: FDA-Public Use
  Company Number: None

PATIENT
  Sex: Male
  Weight: 67.1324 kg

DRUGS (2)
  1. MOISTURIZING SALINE NASAL SPRAY^ ^DEEP SEA PREMIUM MAJOR PHARMACEUTICA [Suspect]
     Indication: NASAL DRYNESS
     Dosage: 2SPRAYS 6XDAY NASAL
     Route: 045
     Dates: start: 20061101, end: 20070301
  2. MOISTURIZING SALINE NASAL SPRAY^ ^DEEP SEA PREMIUM MAJOR PHARMACEUTICA [Suspect]

REACTIONS (7)
  - BURNING SENSATION MUCOSAL [None]
  - DYSGEUSIA [None]
  - EPISTAXIS [None]
  - PHARMACEUTICAL PRODUCT COUNTERFEIT [None]
  - POOR QUALITY DRUG ADMINISTERED [None]
  - RHINORRHOEA [None]
  - THERAPEUTIC PRODUCT CONTAMINATION [None]
